FAERS Safety Report 16249001 (Version 1)
Quarter: 2019Q2

REPORT INFORMATION
  Report Type: Spontaneous
  Country: GB (occurrence: GB)
  Receive Date: 20190429
  Receipt Date: 20190429
  Transmission Date: 20190711
  Serious: Yes (Disabling, Other)
  Sender: FDA-Public Use
  Company Number: GB-ACCORD-124541

PATIENT
  Age: 26 Year
  Sex: Female
  Weight: 53.52 kg

DRUGS (3)
  1. SERTRALINE [Concomitant]
     Active Substance: SERTRALINE HYDROCHLORIDE
  2. ARIPIPRAZOLE. [Suspect]
     Active Substance: ARIPIPRAZOLE
     Indication: BIPOLAR DISORDER
     Dosage: LAST ADMINISTERD UPTO 01-AUG-2018
     Route: 048
     Dates: start: 20150801
  3. DEPAKOTE [Concomitant]
     Active Substance: DIVALPROEX SODIUM

REACTIONS (2)
  - Bile acid malabsorption [Unknown]
  - Anal incontinence [Recovered/Resolved with Sequelae]

NARRATIVE: CASE EVENT DATE: 20150810
